FAERS Safety Report 11106919 (Version 1)
Quarter: 2015Q2

REPORT INFORMATION
  Report Type: Spontaneous
  Country: DK (occurrence: GB)
  Receive Date: 20150512
  Receipt Date: 20150512
  Transmission Date: 20150821
  Serious: Yes (Other)
  Sender: FDA-Public Use
  Company Number: GB-FRI-1000076345

PATIENT
  Age: 51 Year
  Sex: Female
  Weight: 74.38 kg

DRUGS (1)
  1. ESCITALOPRAM [Suspect]
     Active Substance: ESCITALOPRAM OXALATE
     Indication: ANXIETY
     Dosage: 10 MG
     Route: 048
     Dates: start: 20150416, end: 20150420

REACTIONS (3)
  - Chest pain [Recovered/Resolved]
  - Joint stiffness [Recovered/Resolved]
  - Headache [Recovered/Resolved]

NARRATIVE: CASE EVENT DATE: 20150416
